FAERS Safety Report 25046135 (Version 1)
Quarter: 2025Q1

REPORT INFORMATION
  Report Type: Spontaneous
  Country: US (occurrence: US)
  Receive Date: 20250306
  Receipt Date: 20250306
  Transmission Date: 20250409
  Serious: No
  Sender: PURDUE
  Company Number: US-PURDUE-USA-2025-0315781

PATIENT
  Age: 65 Year
  Sex: Female

DRUGS (6)
  1. DRONABINOL [Suspect]
     Active Substance: DRONABINOL
     Indication: Analgesic therapy
     Route: 048
  2. DRONABINOL [Suspect]
     Active Substance: DRONABINOL
     Indication: Sleep disorder
  3. DRONABINOL [Suspect]
     Active Substance: DRONABINOL
     Indication: Inflammation
  4. CANNABIDIOL [Suspect]
     Active Substance: CANNABIDIOL
     Indication: Analgesic therapy
     Route: 065
  5. CANNABIDIOL [Suspect]
     Active Substance: CANNABIDIOL
     Indication: Sleep disorder
  6. CANNABIDIOL [Suspect]
     Active Substance: CANNABIDIOL
     Indication: Inflammation

REACTIONS (3)
  - Feeling abnormal [Unknown]
  - Euphoric mood [Unknown]
  - Product use in unapproved indication [Unknown]
